FAERS Safety Report 14163690 (Version 1)
Quarter: 2017Q4

REPORT INFORMATION
  Report Type: Spontaneous
  Country: US (occurrence: US)
  Receive Date: 20171106
  Receipt Date: 20171106
  Transmission Date: 20180321
  Serious: No
  Sender: FDA-Public Use
  Company Number: US-ETHYPHARM USA CORP.-2017-EY-BU-US-00082

PATIENT
  Sex: Male

DRUGS (3)
  1. BUPRENORPHINE AND NALOXONE [Suspect]
     Active Substance: BUPRENORPHINE\NALOXONE
     Indication: DRUG USE DISORDER
     Dosage: 0.5 DF,1 IN 8 HR (TID)
     Route: 065
  2. BUPRENORPHINE AND NALOXONE [Suspect]
     Active Substance: BUPRENORPHINE\NALOXONE
     Indication: DEPRESSION
  3. BUPRENORPHINE AND NALOXONE [Suspect]
     Active Substance: BUPRENORPHINE\NALOXONE
     Indication: BIPOLAR DISORDER

REACTIONS (8)
  - Drug ineffective [Unknown]
  - Inappropriate schedule of drug administration [Recovered/Resolved]
  - Withdrawal syndrome [Unknown]
  - Drug ineffective for unapproved indication [Unknown]
  - Drug effect variable [Unknown]
  - Wrong technique in product usage process [Unknown]
  - Constipation [Recovered/Resolved]
  - Off label use [Unknown]
